FAERS Safety Report 6029540-9 (Version None)
Quarter: 2009Q1

REPORT INFORMATION
  Report Type: 
  Country: None (occurrence: None)
  Receive Date: 20090107
  Receipt Date: 20081229
  Transmission Date: 20090719
  Serious: Yes (Hospitalization)
  Sender: FDA-Public Use
  Company Number: FR-JNJFOC-20081206789

PATIENT
  Sex: Male

DRUGS (5)
  1. RISPERDAL [Suspect]
     Indication: SCHIZOPHRENIA
     Route: 048
  2. TERCIAN [Suspect]
     Route: 048
  3. TERCIAN [Suspect]
     Indication: SCHIZOPHRENIA
     Route: 048
  4. BIPROFENID [Suspect]
     Indication: ANKYLOSING SPONDYLITIS
     Route: 048
  5. OMEPRAZOLE [Concomitant]

REACTIONS (4)
  - BLOOD ALKALINE PHOSPHATASE INCREASED [None]
  - CYTOLYTIC HEPATITIS [None]
  - GAMMA-GLUTAMYLTRANSFERASE INCREASED [None]
  - SCHIZOPHRENIA [None]
